FAERS Safety Report 16821191 (Version 1)
Quarter: 2019Q3

REPORT INFORMATION
  Report Type: Spontaneous
  Country: US (occurrence: US)
  Receive Date: 20190726
  Receipt Date: 20190726
  Transmission Date: 20191005
  Serious: Yes (Hospitalization)
  Sender: FDA-Public Use
  Company Number: None

PATIENT
  Age: 57 Year
  Sex: Female

DRUGS (2)
  1. MYCOPHENOLATE MOFETIL 500MG TABLET [Suspect]
     Active Substance: MYCOPHENOLATE MOFETIL
     Dates: start: 201407
  2. TACROLIMUS 1MG [Concomitant]
     Active Substance: TACROLIMUS

REACTIONS (3)
  - Product availability issue [None]
  - Therapy cessation [None]
  - Product distribution issue [None]

NARRATIVE: CASE EVENT DATE: 20190725
